FAERS Safety Report 6510531-6 (Version None)
Quarter: 2009Q4

REPORT INFORMATION
  Report Type: 
  Country: None (occurrence: None)
  Receive Date: 20091221
  Receipt Date: 20091221
  Transmission Date: 20100525
  Serious: Yes (Other)
  Sender: FDA-Public Use
  Company Number: None

PATIENT
  Age: 52 Year
  Sex: Male
  Weight: 90.7194 kg

DRUGS (2)
  1. TESTIM [Suspect]
     Indication: HYPOGONADISM
     Dosage: 50MG  QD TOP
     Route: 061
     Dates: start: 20091122, end: 20091124
  2. TESTIM [Suspect]
     Indication: HYPOGONADISM
     Dosage: 50MG  QD TOP
     Route: 061
     Dates: start: 20091206, end: 20091207

REACTIONS (1)
  - BLOOD PRESSURE INCREASED [None]
